FAERS Safety Report 25241528 (Version 1)
Quarter: 2025Q2

REPORT INFORMATION
  Report Type: Spontaneous
  Country: US (occurrence: US)
  Receive Date: 20250426
  Receipt Date: 20250426
  Transmission Date: 20250717
  Serious: No
  Sender: ABBVIE
  Company Number: US-ABBVIE-6243793

PATIENT
  Age: 70 Year
  Sex: Female

DRUGS (3)
  1. PRED FORTE [Suspect]
     Active Substance: PREDNISOLONE ACETATE
     Indication: Product used for unknown indication
     Route: 047
  2. PRED MILD [Suspect]
     Active Substance: PREDNISOLONE ACETATE
     Indication: Corneal disorder
     Route: 047
  3. PRED MILD [Suspect]
     Active Substance: PREDNISOLONE ACETATE
     Indication: Herpes ophthalmic

REACTIONS (4)
  - Off label use [Unknown]
  - Corneal disorder [Unknown]
  - Herpes ophthalmic [Unknown]
  - Product dispensing issue [Unknown]
